FAERS Safety Report 5229548-7 (Version None)
Quarter: 2007Q1

REPORT INFORMATION
  Report Type: 
  Country: None (occurrence: None)
  Receive Date: 20070201
  Receipt Date: 20070120
  Transmission Date: 20070707
  Serious: Yes (Other)
  Sender: FDA-Public Use
  Company Number: 2007304095

PATIENT
  Sex: Female
  Weight: 84.4 kg

DRUGS (1)
  1. ROGAINE [Suspect]
     Indication: ALOPECIA
     Dosage: 1 ML TWICE A DAY (1 ML, 2 IN 1 D), TOPICAL
     Route: 061
     Dates: start: 20061101, end: 20060101

REACTIONS (4)
  - PRURITUS [None]
  - SKIN IRRITATION [None]
  - SWELLING FACE [None]
  - URTICARIA GENERALISED [None]
